FAERS Safety Report 4844839-7 (Version None)
Quarter: 2005Q4

REPORT INFORMATION
  Report Type: 
  Country: None (occurrence: None)
  Receive Date: 20051201
  Receipt Date: 20051201
  Transmission Date: 20060501
  Serious: No
  Sender: FDA-Public Use
  Company Number: None

PATIENT
  Age: 86 Year
  Sex: Female
  Weight: 79.8331 kg

DRUGS (2)
  1. LEVAQUIN [Suspect]
     Indication: PNEUMONIA
     Dosage: 500 MG ONCE DAILY IVPB
     Route: 042
     Dates: start: 20051110
  2. FLUCONAZOLE 100 MG BY ROXANE [Suspect]
     Indication: CANDIDIASIS
     Dosage: 200 MG ONE DOSE ONLY PO
     Route: 048
     Dates: start: 20051110

REACTIONS (7)
  - ANGIONEUROTIC OEDEMA [None]
  - DROOLING [None]
  - DYSARTHRIA [None]
  - DYSPHAGIA [None]
  - FACE OEDEMA [None]
  - PHARYNGEAL OEDEMA [None]
  - SWOLLEN TONGUE [None]
